FAERS Safety Report 4699339-4 (Version None)
Quarter: 2005Q2

REPORT INFORMATION
  Report Type: 
  Country: None (occurrence: None)
  Receive Date: 20050624
  Receipt Date: 20050322
  Transmission Date: 20051028
  Serious: Yes (Hospitalization)
  Sender: FDA-Public Use
  Company Number: US-MERCK-0503USA03880

PATIENT
  Age: 65 Year
  Sex: Female
  Weight: 55 kg

DRUGS (15)
  1. VIOXX [Suspect]
     Indication: BACK PAIN
     Route: 048
     Dates: start: 20030402, end: 20040409
  2. VIOXX [Suspect]
     Route: 048
     Dates: start: 20040507, end: 20040517
  3. VIOXX [Suspect]
     Indication: ARTHRITIS
     Route: 048
     Dates: start: 20030402, end: 20040409
  4. VIOXX [Suspect]
     Route: 048
     Dates: start: 20040507, end: 20040517
  5. SPIRONOLACTONE [Concomitant]
     Route: 065
     Dates: start: 19910101
  6. BENICAR [Concomitant]
     Route: 065
  7. LIPITOR [Concomitant]
     Route: 065
  8. ASPIRIN [Concomitant]
     Route: 065
  9. SYNTHROID [Concomitant]
     Route: 065
  10. ESTRACE [Concomitant]
     Route: 065
  11. ZETIA [Concomitant]
     Route: 065
  12. NORVASC [Concomitant]
     Route: 065
     Dates: start: 19910101
  13. DARVOCET-N 100 [Concomitant]
     Route: 065
  14. SINGULAIR [Concomitant]
     Route: 065
  15. DOXEPIN HYDROCHLORIDE [Concomitant]
     Route: 065

REACTIONS (25)
  - ACUTE SINUSITIS [None]
  - AORTIC VALVE INCOMPETENCE [None]
  - BLOOD ALKALINE PHOSPHATASE INCREASED [None]
  - CAROTID ARTERY STENOSIS [None]
  - CEREBROVASCULAR ACCIDENT [None]
  - CHEST PAIN [None]
  - CHRONIC OBSTRUCTIVE AIRWAYS DISEASE EXACERBATED [None]
  - CHRONIC OBSTRUCTIVE PULMONARY DISEASE [None]
  - DERMATITIS ATOPIC [None]
  - DYSPNOEA [None]
  - HYPOTHYROIDISM [None]
  - INSOMNIA [None]
  - INTERVERTEBRAL DISC DEGENERATION [None]
  - LACUNAR INFARCTION [None]
  - MUSCULOSKELETAL DISCOMFORT [None]
  - OEDEMA [None]
  - OEDEMA PERIPHERAL [None]
  - RHINITIS ALLERGIC [None]
  - SPINAL OSTEOARTHRITIS [None]
  - SUPRAVENTRICULAR EXTRASYSTOLES [None]
  - SWELLING [None]
  - UPPER RESPIRATORY TRACT INFECTION [None]
  - URINARY TRACT INFECTION [None]
  - URTICARIA [None]
  - WHITE BLOOD CELL COUNT DECREASED [None]
